FAERS Safety Report 13334901 (Version 1)
Quarter: 2017Q1

REPORT INFORMATION
  Report Type: Spontaneous
  Country: FR (occurrence: FR)
  Receive Date: 20170315
  Receipt Date: 20170315
  Transmission Date: 20170428
  Serious: Yes (Hospitalization)
  Sender: FDA-Public Use
  Company Number: FR-BAXTER-2017BAX010282

PATIENT
  Age: 6 Year
  Sex: Male

DRUGS (10)
  1. ACTINOMYCIN D [Suspect]
     Active Substance: DACTINOMYCIN
     Indication: PRODUCT USED FOR UNKNOWN INDICATION
     Dosage: COURSE 1 DAY 1, DOSE ALSO REPORTED AS 1.5 MG/M2
     Route: 065
     Dates: start: 20161116
  2. VINCRISTINE [Suspect]
     Active Substance: VINCRISTINE
     Dosage: COURSE 3
     Route: 065
     Dates: start: 20161228
  3. UROMITEXAN 5 G/50 ML, SOLUTION INJECTABLE POUR PERFUSION EN FLACON [Suspect]
     Active Substance: MESNA
     Indication: PRODUCT USED FOR UNKNOWN INDICATION
     Route: 065
     Dates: start: 20170105, end: 20170105
  4. VINCRISTINE [Suspect]
     Active Substance: VINCRISTINE
     Indication: PRODUCT USED FOR UNKNOWN INDICATION
     Dosage: COURSE 1 DAY 1, DOSE ALSO REPORTED AS 1.5 MG/M2
     Route: 065
     Dates: start: 20161116
  5. HOLOXAN 2000 MG, POUDRE POUR USAGE PARENT?RAL [Suspect]
     Active Substance: IFOSFAMIDE
     Indication: PRODUCT USED FOR UNKNOWN INDICATION
     Dosage: COURSE 1 DAY 1, DAY 2 OF RMS PROTOCOL, DOSE ALSO REPORTED AS 3000 MG/M2
     Route: 065
     Dates: start: 20161116
  6. HOLOXAN 2000 MG, POUDRE POUR USAGE PARENT?RAL [Suspect]
     Active Substance: IFOSFAMIDE
     Dosage: LYOPHILIZED FOR SOLUTION FOR INJECTION, COURSE 2
     Route: 042
     Dates: start: 20161207, end: 20161209
  7. HOLOXAN 2000 MG, POUDRE POUR USAGE PARENT?RAL [Suspect]
     Active Substance: IFOSFAMIDE
     Dosage: LYOPHILIZED FOR SOLUTION FOR INJECTION, COURSE 3
     Route: 042
     Dates: start: 20170105
  8. VINCRISTINE [Suspect]
     Active Substance: VINCRISTINE
     Dosage: COURSE 2
     Route: 065
     Dates: start: 20161207, end: 20161209
  9. VINCRISTINE [Suspect]
     Active Substance: VINCRISTINE
     Dosage: COURSE 3
     Route: 065
     Dates: start: 20170105
  10. ACTINOMYCIN D [Suspect]
     Active Substance: DACTINOMYCIN
     Dosage: COURSE 2
     Route: 065
     Dates: start: 20161207, end: 20161209

REACTIONS (1)
  - Encephalopathy [Recovered/Resolved]

NARRATIVE: CASE EVENT DATE: 20161207
